FAERS Safety Report 8425474-0 (Version None)
Quarter: 2012Q2

REPORT INFORMATION
  Report Type: 
  Country: None (occurrence: None)
  Receive Date: 20120604
  Receipt Date: 20120523
  Transmission Date: 20120825
  Serious: Yes (Death)
  Sender: FDA-Public Use
  Company Number: APL-2012-00090

PATIENT
  Age: 62 Year
  Sex: Male
  Weight: 60 kg

DRUGS (8)
  1. ZOMETA [Concomitant]
  2. LYRICA [Concomitant]
  3. LORAZEPAM [Concomitant]
  4. FENTANYL [Suspect]
     Indication: BREAKTHROUGH PAIN
     Dosage: 100 UG
     Dates: start: 20120515, end: 20120521
  5. FENTANYL [Suspect]
     Indication: BRONCHIAL CARCINOMA
     Dosage: 100 UG
     Dates: start: 20120515, end: 20120521
  6. FENTANYL [Concomitant]
  7. MOVIPREP [Concomitant]
  8. METAMIZOL [Concomitant]

REACTIONS (4)
  - NEOPLASM PROGRESSION [None]
  - METASTASES TO PLEURA [None]
  - NON-SMALL CELL LUNG CANCER [None]
  - RESPIRATORY FAILURE [None]
